FAERS Safety Report 7786165-2 (Version None)
Quarter: 2011Q3

REPORT INFORMATION
  Report Type: 
  Country: None (occurrence: None)
  Receive Date: 20110929
  Receipt Date: 20110921
  Transmission Date: 20111222
  Serious: Yes (Hospitalization)
  Sender: FDA-Public Use
  Company Number: JP-EISAI INC-E2090-01683-SPO-JP

PATIENT
  Sex: Male
  Weight: 53 kg

DRUGS (7)
  1. ZONISAMIDE [Suspect]
     Indication: CEREBRAL PALSY
  2. PLETAL [Concomitant]
  3. ZONISAMIDE [Suspect]
     Route: 048
     Dates: start: 20110512
  4. TEGRETOL [Concomitant]
     Dates: start: 20071113
  5. LIPITOR [Concomitant]
  6. HYDANTOL F [Concomitant]
  7. LOXONIN [Suspect]
     Dosage: UNKNOWN
     Route: 048
     Dates: start: 20110528

REACTIONS (1)
  - STEVENS-JOHNSON SYNDROME [None]
